FAERS Safety Report 9771181 (Version 1)
Quarter: 2013Q4

REPORT INFORMATION
  Report Type: Spontaneous
  Country: US (occurrence: US)
  Receive Date: 20131218
  Receipt Date: 20131218
  Transmission Date: 20140711
  Serious: Yes (Other)
  Sender: FDA-Public Use
  Company Number: US-ELI_LILLY_AND_COMPANY-US201312003641

PATIENT
  Sex: Male

DRUGS (1)
  1. HUMALOG LISPRO [Suspect]
     Indication: BLOOD GLUCOSE ABNORMAL
     Dosage: UNK, PRN
     Route: 065
     Dates: start: 2012

REACTIONS (3)
  - Brain neoplasm malignant [Unknown]
  - Blood glucose increased [Unknown]
  - Underdose [Unknown]
